FAERS Safety Report 16656700 (Version 1)
Quarter: 2019Q3

REPORT INFORMATION
  Report Type: Spontaneous
  Country: US (occurrence: US)
  Receive Date: 20190801
  Receipt Date: 20190801
  Transmission Date: 20191004
  Serious: Yes (Other)
  Sender: FDA-Public Use
  Company Number: US-JNJFOC-20190736988

PATIENT
  Sex: Female
  Weight: 126.21 kg

DRUGS (8)
  1. METHOTREXATE. [Concomitant]
     Active Substance: METHOTREXATE
  2. LEVOTHYROXINE. [Concomitant]
     Active Substance: LEVOTHYROXINE
  3. PANTOPRAZOLE [Concomitant]
     Active Substance: PANTOPRAZOLE
  4. TRAMADOL. [Concomitant]
     Active Substance: TRAMADOL
  5. PREDNISONE. [Concomitant]
     Active Substance: PREDNISONE
  6. LISINOPRIL. [Concomitant]
     Active Substance: LISINOPRIL
  7. PRIVIGEN [Concomitant]
     Active Substance: HUMAN IMMUNOGLOBULIN G
  8. XARELTO [Suspect]
     Active Substance: RIVAROXABAN
     Indication: DEEP VEIN THROMBOSIS
     Route: 048

REACTIONS (19)
  - Influenza [Unknown]
  - Hypertension [Unknown]
  - Arthritis [Unknown]
  - Cognitive disorder [Unknown]
  - Feeling abnormal [Unknown]
  - Hypogammaglobulinaemia [Unknown]
  - Dyspnoea [Unknown]
  - Thyroid disorder [Unknown]
  - Negative thoughts [Unknown]
  - Wheezing [Unknown]
  - Sjogren^s syndrome [Unknown]
  - Skin atrophy [Unknown]
  - Swelling [Unknown]
  - Gastrooesophageal reflux disease [Unknown]
  - Peripheral coldness [Unknown]
  - Hypoaesthesia [Unknown]
  - Rash [Unknown]
  - Glucose tolerance impaired [Unknown]
  - Musculoskeletal stiffness [Unknown]
